FAERS Safety Report 7331885-7 (Version None)
Quarter: 2011Q1

REPORT INFORMATION
  Report Type: 
  Country: None (occurrence: None)
  Receive Date: 20110304
  Receipt Date: 20091021
  Transmission Date: 20110831
  Serious: No
  Sender: FDA-Public Use
  Company Number: US-PFIZER INC-2009287115

PATIENT

DRUGS (1)
  1. DILANTIN [Suspect]
     Dosage: 100 MG, UNK
     Route: 048

REACTIONS (1)
  - DYSPHAGIA [None]
